FAERS Safety Report 7000390-X (Version None)
Quarter: 2010Q3

REPORT INFORMATION
  Report Type: 
  Country: None (occurrence: None)
  Receive Date: 20100920
  Receipt Date: 20100420
  Transmission Date: 20110219
  Serious: No
  Sender: FDA-Public Use
  Company Number: US-ASTRAZENECA-2010SE17548

PATIENT
  Age: 38 Year
  Sex: Female

DRUGS (3)
  1. SEROQUEL XR [Suspect]
     Indication: BIPOLAR DISORDER
     Route: 048
     Dates: start: 20100301, end: 20100301
  2. SEROQUEL XR [Suspect]
     Route: 048
     Dates: start: 20100301, end: 20100301
  3. PRISTIQ [Concomitant]

REACTIONS (2)
  - AGITATION [None]
  - FEELING ABNORMAL [None]
